FAERS Safety Report 11873714 (Version 1)
Quarter: 2015Q4

REPORT INFORMATION
  Report Type: Report from Study
  Country: US (occurrence: US)
  Receive Date: 20151228
  Receipt Date: 20151228
  Transmission Date: 20160305
  Serious: Yes (Hospitalization)
  Sender: FDA-Public Use
  Company Number: US-BIOGEN-2008BI029511

PATIENT
  Age: 61 Year
  Sex: Male

DRUGS (4)
  1. WELLBUTRIN [Concomitant]
     Active Substance: BUPROPION HYDROCHLORIDE
     Indication: PRODUCT USED FOR UNKNOWN INDICATION
  2. AVONEX [Suspect]
     Active Substance: INTERFERON BETA-1A
     Indication: MULTIPLE SCLEROSIS
     Route: 030
  3. AVONEX [Suspect]
     Active Substance: INTERFERON BETA-1A
     Route: 030
     Dates: start: 20011111
  4. BACLOFEN. [Concomitant]
     Active Substance: BACLOFEN
     Indication: MUSCLE SPASTICITY

REACTIONS (7)
  - Delirium [Recovered/Resolved]
  - Urinary tract infection [Recovered/Resolved]
  - Lymphoedema [Recovered/Resolved]
  - Abnormal behaviour [Recovered/Resolved]
  - Cellulitis [Recovered/Resolved]
  - Hallucination, visual [Recovered/Resolved]
  - Lymphatic disorder [Unknown]

NARRATIVE: CASE EVENT DATE: 2003
